FAERS Safety Report 4515497-6 (Version None)
Quarter: 2004Q4

REPORT INFORMATION
  Report Type: 
  Country: None (occurrence: None)
  Receive Date: 20041126
  Receipt Date: 20041112
  Transmission Date: 20050328
  Serious: Yes (Hospitalization)
  Sender: FDA-Public Use
  Company Number: 207754

PATIENT
  Age: 57 Year
  Sex: Female
  Weight: 90.7194 kg

DRUGS (8)
  1. AVONEX [Suspect]
     Indication: MULTIPLE SCLEROSIS
     Dosage: 30 UG; QW; IM
     Route: 030
     Dates: start: 20040403
  2. MULTIVITAMIN [Concomitant]
  3. DITROPAN [Concomitant]
  4. THYROXIN [Concomitant]
  5. NEXIUM [Concomitant]
  6. CATAPRES-TTS-1 [Concomitant]
  7. TOPROL-XL [Concomitant]
  8. BENECOL [Concomitant]

REACTIONS (3)
  - BLOOD PRESSURE INCREASED [None]
  - CONDITION AGGRAVATED [None]
  - MULTIPLE SCLEROSIS [None]
